FAERS Safety Report 12960780 (Version 1)
Quarter: 2016Q4

REPORT INFORMATION
  Report Type: Spontaneous
  Country: US (occurrence: US)
  Receive Date: 20161121
  Receipt Date: 20161121
  Transmission Date: 20170207
  Serious: No
  Sender: FDA-Public Use
  Company Number: US-NEOS THERAPEUTICS, LP-2016NEO00023

PATIENT
  Age: 15 Year
  Sex: Male

DRUGS (2)
  1. ADZENYS XR-ODT [Suspect]
     Active Substance: AMPHETAMINE
     Dosage: 12.3 UNK, UNK
     Dates: start: 201608
  2. ADZENYS XR-ODT [Suspect]
     Active Substance: AMPHETAMINE
     Dosage: 6.3 MG, UNK
     Dates: start: 20160801, end: 201608

REACTIONS (1)
  - Erythema [Unknown]

NARRATIVE: CASE EVENT DATE: 20160815
